FAERS Safety Report 22185053 (Version 2)
Quarter: 2023Q2

REPORT INFORMATION
  Report Type: Spontaneous
  Country: US (occurrence: US)
  Receive Date: 20230407
  Receipt Date: 20230419
  Transmission Date: 20230721
  Serious: No
  Sender: FDA-Public Use
  Company Number: US-JNJFOC-20230410451

PATIENT
  Sex: Male

DRUGS (2)
  1. INVEGA HAFYERA [Suspect]
     Active Substance: PALIPERIDONE PALMITATE
     Indication: Product used for unknown indication
     Route: 030
  2. INVEGA HAFYERA [Suspect]
     Active Substance: PALIPERIDONE PALMITATE

REACTIONS (2)
  - Drug ineffective [Unknown]
  - Condition aggravated [Unknown]
